FAERS Safety Report 23563371 (Version 3)
Quarter: 2025Q4

REPORT INFORMATION
  Report Type: Spontaneous
  Country: US (occurrence: US)
  Receive Date: 20240226
  Receipt Date: 20251209
  Transmission Date: 20260118
  Serious: Yes (Other)
  Sender: SANOFI AVENTIS
  Company Number: US-SANOFI-01951523

PATIENT
  Age: 70 Year
  Sex: Male
  Weight: 102.06 kg

DRUGS (2)
  1. APIDRA SOLOSTAR [Suspect]
     Active Substance: INSULIN GLULISINE
     Indication: Blood glucose increased
     Dosage: 20 UNITS (4 TO 6 UNITS) SOMETIMES QID
  2. APIDRA SOLOSTAR [Suspect]
     Active Substance: INSULIN GLULISINE
     Dosage: 66 IU, QD
     Route: 058
     Dates: start: 20190101, end: 20240801

REACTIONS (2)
  - Weight decreased [Unknown]
  - Product storage error [Unknown]

NARRATIVE: CASE EVENT DATE: 20240101
